FAERS Safety Report 20126571 (Version 3)
Quarter: 2022Q2

REPORT INFORMATION
  Report Type: Spontaneous
  Country: US (occurrence: None)
  Receive Date: 20211129
  Receipt Date: 20220517
  Transmission Date: 20220721
  Serious: No
  Sender: FDA-Public Use
  Company Number: 2021A803897

PATIENT
  Age: 23237 Day
  Sex: Female
  Weight: 52.2 kg

DRUGS (3)
  1. SYMBICORT [Suspect]
     Active Substance: BUDESONIDE\FORMOTEROL FUMARATE DIHYDRATE
     Indication: Chronic obstructive pulmonary disease
     Dosage: 160/4.5 MCG 2 PUFFS TWO TIMES A DAY
     Route: 055
  2. SYMBICORT [Suspect]
     Active Substance: BUDESONIDE\FORMOTEROL FUMARATE DIHYDRATE
     Indication: Chronic obstructive pulmonary disease
     Dosage: 160/4.5MCG 2 PUFFS TWO TIMES A DAY
     Route: 055
  3. SYMBICORT [Suspect]
     Active Substance: BUDESONIDE\FORMOTEROL FUMARATE DIHYDRATE
     Indication: Chronic obstructive pulmonary disease
     Dosage: 160/4.5MCG 2 PUFFS TWO TIMES A DAY
     Route: 055

REACTIONS (6)
  - Dyspnoea [Not Recovered/Not Resolved]
  - Weight decreased [Recovered/Resolved]
  - Drug dose omission by device [Not Recovered/Not Resolved]
  - Device malfunction [Unknown]
  - Device issue [Recovered/Resolved]
  - Wrong technique in device usage process [Recovered/Resolved]

NARRATIVE: CASE EVENT DATE: 20211109
